FAERS Safety Report 6379925-6 (Version None)
Quarter: 2009Q3

REPORT INFORMATION
  Report Type: 
  Country: None (occurrence: None)
  Receive Date: 20090928
  Receipt Date: 20090925
  Transmission Date: 20100115
  Serious: Yes (Death)
  Sender: FDA-Public Use
  Company Number: PHEH2009US11641

PATIENT
  Sex: Female

DRUGS (8)
  1. GLEEVEC [Suspect]
     Indication: ACUTE LYMPHOCYTIC LEUKAEMIA
     Dosage: 400 MG, QD
     Route: 048
     Dates: start: 20090706
  2. GLEEVEC [Suspect]
     Indication: CHROMOSOME ANALYSIS ABNORMAL
  3. PRILOSEC [Concomitant]
  4. FENTANYL [Concomitant]
  5. FLUCONAZOLE [Concomitant]
     Dosage: 200 MG, BID
  6. ACYCLOVIR [Concomitant]
     Dosage: 400 MG, BID
  7. AUGMENTIN '125' [Concomitant]
     Dosage: 500 MG, BID
  8. MEPRON [Concomitant]
     Dosage: 1500 MG, QD

REACTIONS (3)
  - BRONCHOPULMONARY ASPERGILLOSIS [None]
  - HAEMOPTYSIS [None]
  - RESPIRATORY FAILURE [None]
